FAERS Safety Report 11139101 (Version 1)
Quarter: 2015Q2

REPORT INFORMATION
  Report Type: Report from Study
  Country: FR (occurrence: FR)
  Receive Date: 20150527
  Receipt Date: 20150527
  Transmission Date: 20150821
  Serious: Yes (Hospitalization)
  Sender: FDA-Public Use
  Company Number: FR-ROCHE-1164282

PATIENT
  Age: 88 Year
  Sex: Female

DRUGS (7)
  1. RITUXIMAB [Suspect]
     Active Substance: RITUXIMAB
     Dosage: D1
     Route: 041
     Dates: start: 20080926
  2. RITUXIMAB [Suspect]
     Active Substance: RITUXIMAB
     Dosage: D15
     Route: 041
     Dates: start: 20071011
  3. RITUXIMAB [Suspect]
     Active Substance: RITUXIMAB
     Dosage: D15
     Route: 041
     Dates: start: 20081014
  4. CORTANCYL [Concomitant]
     Active Substance: PREDNISONE
     Dosage: DAILY
     Route: 065
  5. RITUXIMAB [Suspect]
     Active Substance: RITUXIMAB
     Indication: RHEUMATOID ARTHRITIS
     Dosage: D1
     Route: 041
     Dates: start: 20070927
  6. METHOTREXATE [Concomitant]
     Active Substance: METHOTREXATE
     Route: 065
  7. CORTANCYL [Concomitant]
     Active Substance: PREDNISONE
     Dosage: DAILY
     Route: 065

REACTIONS (13)
  - Pelvic fracture [Unknown]
  - Haemorrhoids [Recovered/Resolved]
  - Anaemia [Not Recovered/Not Resolved]
  - Goitre [Unknown]
  - Cardiac disorder [Recovered/Resolved]
  - Hyperthyroidism [Unknown]
  - Osteoarthritis [Not Recovered/Not Resolved]
  - Genitourinary tract infection [Recovered/Resolved]
  - Escherichia urinary tract infection [Unknown]
  - Cardiac failure [Unknown]
  - Fractured sacrum [Recovered/Resolved]
  - Oral herpes [Recovered/Resolved]
  - Fall [Unknown]

NARRATIVE: CASE EVENT DATE: 20080421
